FAERS Safety Report 8314301-8 (Version None)
Quarter: 2012Q1

REPORT INFORMATION
  Report Type: 
  Country: None (occurrence: None)
  Receive Date: 20120315
  Receipt Date: 20110531
  Transmission Date: 20120608
  Serious: Yes (Other)
  Sender: FDA-Public Use
  Company Number: PHHY2011US24483

PATIENT
  Age: 30 Year
  Sex: Female
  Weight: 32.7043 kg

DRUGS (5)
  1. IBUPROFEN [Concomitant]
  2. MAXALT [Concomitant]
  3. AMANTADINE HCL [Concomitant]
  4. ACETAMINOPHEN [Concomitant]
  5. GILENYA [Suspect]
     Indication: MULTIPLE SCLEROSIS
     Dosage: 0.5 MG, QD, ORAL
     Route: 048

REACTIONS (7)
  - SENSORY DISTURBANCE [None]
  - FATIGUE [None]
  - MULTIPLE SCLEROSIS RELAPSE [None]
  - BALANCE DISORDER [None]
  - CONFUSIONAL STATE [None]
  - CENTRAL NERVOUS SYSTEM LESION [None]
  - MEMORY IMPAIRMENT [None]
